FAERS Safety Report 18098202 (Version 1)
Quarter: 2020Q3

REPORT INFORMATION
  Report Type: Spontaneous
  Country: US (occurrence: US)
  Receive Date: 20200731
  Receipt Date: 20200731
  Transmission Date: 20201103
  Serious: No
  Sender: FDA-Public Use
  Company Number: None

PATIENT
  Age: 72 Year
  Sex: Male

DRUGS (1)
  1. ABIRATERONE ACETATE 250MG NOVADOZ PHARMACEUTICALS [Suspect]
     Active Substance: ABIRATERONE ACETATE
     Indication: ILLNESS
     Route: 048
     Dates: start: 20190828

REACTIONS (3)
  - Throat irritation [None]
  - Burn oesophageal [None]
  - Product use complaint [None]

NARRATIVE: CASE EVENT DATE: 202007
